FAERS Safety Report 7811945-4 (Version None)
Quarter: 2011Q4

REPORT INFORMATION
  Report Type: 
  Country: None (occurrence: None)
  Receive Date: 20111013
  Receipt Date: 20111013
  Transmission Date: 20120403
  Serious: Yes (Hospitalization)
  Sender: FDA-Public Use
  Company Number: PHHO2009US15743

PATIENT
  Sex: Female
  Weight: 50.1 kg

DRUGS (1)
  1. GILENYA [Suspect]
     Indication: MULTIPLE SCLEROSIS
     Dosage: 0.5 MG, UNK
     Route: 048
     Dates: start: 20071212

REACTIONS (11)
  - CHILLS [None]
  - HEADACHE [None]
  - VISION BLURRED [None]
  - VOMITING [None]
  - ESCHERICHIA INFECTION [None]
  - CONSTIPATION [None]
  - FATIGUE [None]
  - PAIN [None]
  - PYREXIA [None]
  - NAUSEA [None]
  - URINARY TRACT INFECTION [None]
